FAERS Safety Report 15957564 (Version 2)
Quarter: 2019Q1

REPORT INFORMATION
  Report Type: Spontaneous
  Country: US (occurrence: US)
  Receive Date: 20190213
  Receipt Date: 20190321
  Transmission Date: 20190417
  Serious: Yes (Hospitalization, Other)
  Sender: FDA-Public Use
  Company Number: US-ASTRAZENECA-2017SE77984

PATIENT
  Age: 26785 Day
  Sex: Male
  Weight: 113.4 kg

DRUGS (1)
  1. SYMBICORT [Suspect]
     Active Substance: BUDESONIDE\FORMOTEROL FUMARATE DIHYDRATE
     Indication: CHRONIC OBSTRUCTIVE PULMONARY DISEASE
     Dosage: 160MCG/4.5MCG, TWO PUFFS TWICE DAILY
     Route: 055
     Dates: start: 2016

REACTIONS (6)
  - Device issue [Unknown]
  - Intentional product misuse [Unknown]
  - Product taste abnormal [Not Recovered/Not Resolved]
  - Device failure [Unknown]
  - Colon cancer [Unknown]
  - Full blood count decreased [Unknown]

NARRATIVE: CASE EVENT DATE: 20170726
